FAERS Safety Report 18518723 (Version 3)
Quarter: 2021Q1

REPORT INFORMATION
  Report Type: Report from Study
  Country: CA (occurrence: CA)
  Receive Date: 20201119
  Receipt Date: 20210129
  Transmission Date: 20210419
  Serious: Yes (Other)
  Sender: FDA-Public Use
  Company Number: CA-JNJFOC-20201120011

PATIENT
  Age: 66 Year
  Sex: Female
  Weight: 69 kg

DRUGS (3)
  1. STELARA [Suspect]
     Active Substance: USTEKINUMAB
     Indication: COLITIS ULCERATIVE
     Route: 058
     Dates: start: 20200720
  2. PREDNISONE. [Suspect]
     Active Substance: PREDNISONE
     Indication: PRODUCT USED FOR UNKNOWN INDICATION
     Dosage: 20 MG PO AND TAPPERING
     Route: 048
  3. STELARA [Suspect]
     Active Substance: USTEKINUMAB

REACTIONS (11)
  - Abdominal distension [Not Recovered/Not Resolved]
  - Dyspepsia [Unknown]
  - Swelling face [Not Recovered/Not Resolved]
  - Abdominal pain [Not Recovered/Not Resolved]
  - Frequent bowel movements [Unknown]
  - Pain [Unknown]
  - Asthenia [Unknown]
  - Drug ineffective [Unknown]
  - Haematochezia [Not Recovered/Not Resolved]
  - Flatulence [Not Recovered/Not Resolved]
  - Dizziness [Unknown]

NARRATIVE: CASE EVENT DATE: 2020
